FAERS Safety Report 17880569 (Version 1)
Quarter: 2020Q2

REPORT INFORMATION
  Report Type: Spontaneous
  Country: US (occurrence: US)
  Receive Date: 20200610
  Receipt Date: 20200610
  Transmission Date: 20200714
  Serious: No
  Sender: FDA-Public Use
  Company Number: None

PATIENT
  Age: 35 Year
  Sex: Female
  Weight: 60.3 kg

DRUGS (2)
  1. NP THYROID [Suspect]
     Active Substance: LEVOTHYROXINE\LIOTHYRONINE
     Indication: AUTOIMMUNE THYROIDITIS
     Route: 048
     Dates: start: 20200316, end: 20200526
  2. PRE NATAL VITAMIN [Concomitant]

REACTIONS (8)
  - Night sweats [None]
  - Hyperthyroidism [None]
  - Infertility [None]
  - Diarrhoea [None]
  - Insomnia [None]
  - Alopecia [None]
  - Menstruation irregular [None]
  - Nausea [None]

NARRATIVE: CASE EVENT DATE: 20200527
